FAERS Safety Report 14371851 (Version 1)
Quarter: 2018Q1

REPORT INFORMATION
  Report Type: Spontaneous
  Country: US (occurrence: US)
  Receive Date: 20180109
  Receipt Date: 20180109
  Transmission Date: 20180509
  Serious: Yes (Other)
  Sender: FDA-Public Use
  Company Number: None

PATIENT
  Age: 66 Year
  Sex: Female
  Weight: 63 kg

DRUGS (3)
  1. MUCINEX DM MAXIMUM STRENGTH [Suspect]
     Active Substance: DEXTROMETHORPHAN HYDROBROMIDE\GUAIFENESIN
     Indication: COUGH
     Dosage: ?          QUANTITY:1 TABLET(S);?
     Route: 048
     Dates: start: 20180108, end: 20180108
  2. DECONGESTANT [Concomitant]
     Active Substance: UNSPECIFIED INGREDIENT
  3. NEXIUM [Concomitant]
     Active Substance: ESOMEPRAZOLE MAGNESIUM

REACTIONS (10)
  - Diarrhoea [None]
  - Blood pressure increased [None]
  - Heart rate decreased [None]
  - Hot flush [None]
  - Disorientation [None]
  - Hyperhidrosis [None]
  - Headache [None]
  - Dizziness [None]
  - Vomiting [None]
  - Refusal of treatment by patient [None]

NARRATIVE: CASE EVENT DATE: 20180108
